FAERS Safety Report 17620193 (Version 3)
Quarter: 2020Q2

REPORT INFORMATION
  Report Type: Spontaneous
  Country: US (occurrence: US)
  Receive Date: 20200403
  Receipt Date: 20200429
  Transmission Date: 20200713
  Serious: Yes (Other)
  Sender: FDA-Public Use
  Company Number: NVSC2020US091036

PATIENT
  Age: 8 Year
  Sex: Male
  Weight: 28 kg

DRUGS (1)
  1. KYMRIAH [Suspect]
     Active Substance: TISAGENLECLEUCEL
     Indication: ACUTE LYMPHOCYTIC LEUKAEMIA RECURRENT
     Dosage: 1 DF (2500000), ONCE/SINGLE
     Route: 042
     Dates: start: 20191217, end: 20191217

REACTIONS (2)
  - B-lymphocyte count abnormal [Not Recovered/Not Resolved]
  - B-cell aplasia [Unknown]

NARRATIVE: CASE EVENT DATE: 202003
